FAERS Safety Report 21626447 (Version 1)
Quarter: 2022Q4

REPORT INFORMATION
  Report Type: Spontaneous
  Country: US (occurrence: None)
  Receive Date: 20221122
  Receipt Date: 20221122
  Transmission Date: 20230113
  Serious: No
  Sender: FDA-Public Use
  Company Number: US-ROCHE-3058093

PATIENT
  Sex: Female

DRUGS (1)
  1. LUCENTIS [Suspect]
     Active Substance: RANIBIZUMAB
     Indication: Macular oedema
     Dosage: INJECT 0.5MG INTRAVITREALLY INTO THE LEFT EYE EVERY 28 DAYS, DATE OF THERAPY : 11-15-2021
     Route: 050
     Dates: start: 20211115

REACTIONS (1)
  - Eye swelling [Unknown]
